FAERS Safety Report 25245236 (Version 1)
Quarter: 2025Q2

REPORT INFORMATION
  Report Type: Spontaneous
  Country: US (occurrence: US)
  Receive Date: 20250428
  Receipt Date: 20250428
  Transmission Date: 20250716
  Serious: Yes (Life-Threatening, Hospitalization)
  Sender: MYLAN
  Company Number: US-MYLANLABS-2025M1034452

PATIENT
  Age: 24 Year
  Sex: Male

DRUGS (12)
  1. DEXAMETHASONE [Suspect]
     Active Substance: DEXAMETHASONE
     Indication: COVID-19
  2. DEXAMETHASONE [Suspect]
     Active Substance: DEXAMETHASONE
     Route: 065
  3. DEXAMETHASONE [Suspect]
     Active Substance: DEXAMETHASONE
     Route: 065
  4. DEXAMETHASONE [Suspect]
     Active Substance: DEXAMETHASONE
  5. ACETYLCYSTEINE [Suspect]
     Active Substance: ACETYLCYSTEINE
     Indication: Acute hepatic failure
  6. ACETYLCYSTEINE [Suspect]
     Active Substance: ACETYLCYSTEINE
     Route: 065
  7. ACETYLCYSTEINE [Suspect]
     Active Substance: ACETYLCYSTEINE
     Route: 065
  8. ACETYLCYSTEINE [Suspect]
     Active Substance: ACETYLCYSTEINE
  9. REMDESIVIR [Concomitant]
     Active Substance: REMDESIVIR
     Indication: COVID-19
  10. REMDESIVIR [Concomitant]
     Active Substance: REMDESIVIR
     Route: 065
  11. REMDESIVIR [Concomitant]
     Active Substance: REMDESIVIR
     Route: 065
  12. REMDESIVIR [Concomitant]
     Active Substance: REMDESIVIR

REACTIONS (1)
  - Drug ineffective [Unknown]
